FAERS Safety Report 14314041 (Version 1)
Quarter: 2017Q4

REPORT INFORMATION
  Report Type: Spontaneous
  Country: US (occurrence: US)
  Receive Date: 20171221
  Receipt Date: 20171221
  Transmission Date: 20180321
  Serious: No
  Sender: FDA-Public Use
  Company Number: US-PFIZER INC-2017538244

PATIENT
  Age: 71 Year
  Sex: Female

DRUGS (1)
  1. IBRANCE [Suspect]
     Active Substance: PALBOCICLIB
     Dosage: UNK

REACTIONS (7)
  - Nausea [Unknown]
  - Chills [Unknown]
  - Intentional product misuse [Unknown]
  - Malaise [Unknown]
  - Hypertension [Unknown]
  - Hyperhidrosis [Unknown]
  - Panic attack [Unknown]
